FAERS Safety Report 12408922 (Version 3)
Quarter: 2016Q2

REPORT INFORMATION
  Report Type: Spontaneous
  Country: US (occurrence: US)
  Receive Date: 20160526
  Receipt Date: 20160606
  Transmission Date: 20160815
  Serious: Yes (Life-Threatening, Hospitalization)
  Sender: FDA-Public Use
  Company Number: US-PFIZER INC-2016270839

PATIENT
  Age: 8 Year
  Sex: Male
  Weight: 23 kg

DRUGS (3)
  1. WATER. [Suspect]
     Active Substance: WATER
     Dosage: UNK
  2. LISDEXAMFETAMINE DIMESYLATE [Concomitant]
     Active Substance: LISDEXAMFETAMINE DIMESYLATE
     Indication: ATTENTION DEFICIT/HYPERACTIVITY DISORDER
     Dosage: 20 MG, UNK
  3. METHYLPHENIDATE HYDROCHLORIDE. [Suspect]
     Active Substance: METHYLPHENIDATE HYDROCHLORIDE
     Dosage: 36 MG, UNK
     Route: 048
     Dates: start: 20130823

REACTIONS (5)
  - Accidental overdose [Recovered/Resolved]
  - Water intoxication [Recovered/Resolved]
  - Polydipsia [Recovered/Resolved]
  - Hyponatraemia [Recovered/Resolved]
  - Psychotic disorder [Recovered/Resolved]
